FAERS Safety Report 17717298 (Version 4)
Quarter: 2023Q2

REPORT INFORMATION
  Report Type: Spontaneous
  Country: US (occurrence: None)
  Receive Date: 20200428
  Receipt Date: 20230630
  Transmission Date: 20230721
  Serious: Yes (Death, Other)
  Sender: FDA-Public Use
  Company Number: 2020SE54107

PATIENT
  Age: 25423 Day
  Sex: Female
  Weight: 111.6 kg

DRUGS (42)
  1. NEXIUM [Suspect]
     Active Substance: ESOMEPRAZOLE MAGNESIUM
     Indication: Gastrooesophageal reflux disease
     Route: 048
     Dates: start: 200101, end: 200601
  2. NEXIUM [Suspect]
     Active Substance: ESOMEPRAZOLE MAGNESIUM
     Indication: Gastrooesophageal reflux disease
     Route: 048
     Dates: start: 2003
  3. NEXIUM [Suspect]
     Active Substance: ESOMEPRAZOLE MAGNESIUM
     Indication: Gastrooesophageal reflux disease
     Route: 048
     Dates: start: 20151231
  4. OMEPRAZOLE [Suspect]
     Active Substance: OMEPRAZOLE
     Indication: Gastrooesophageal reflux disease
     Dosage: GENERIC
     Dates: start: 2015
  5. OMEPRAZOLE [Suspect]
     Active Substance: OMEPRAZOLE
     Indication: Gastrooesophageal reflux disease
     Dosage: GENERIC20.0MG UNKNOWN
     Dates: start: 20200129
  6. PREVACID [Suspect]
     Active Substance: LANSOPRAZOLE
     Indication: Gastrooesophageal reflux disease
     Dates: start: 200101, end: 200601
  7. PREVACID [Suspect]
     Active Substance: LANSOPRAZOLE
     Indication: Gastrooesophageal reflux disease
     Dates: start: 2001, end: 2018
  8. PROTONIX [Suspect]
     Active Substance: PANTOPRAZOLE SODIUM
     Indication: Gastrooesophageal reflux disease
     Dates: start: 2015
  9. PROTONIX [Suspect]
     Active Substance: PANTOPRAZOLE SODIUM
     Indication: Gastrooesophageal reflux disease
     Dosage: GENERIC
     Dates: start: 2015
  10. PROTONIX [Suspect]
     Active Substance: PANTOPRAZOLE SODIUM
     Indication: Gastrooesophageal reflux disease
     Dosage: GENERIC
     Dates: start: 2015, end: 2018
  11. LISINOPRIL [Concomitant]
     Active Substance: LISINOPRIL
     Indication: Cardiac failure
     Dates: start: 2013
  12. LISINOPRIL [Concomitant]
     Active Substance: LISINOPRIL
     Indication: Blood pressure abnormal
     Dates: start: 2013
  13. AMLODIPINE [Concomitant]
     Active Substance: AMLODIPINE BESYLATE
  14. FUROSEMIDE [Concomitant]
     Active Substance: FUROSEMIDE
  15. GLIPIZIDE [Concomitant]
     Active Substance: GLIPIZIDE
  16. LEVEMIR [Concomitant]
     Active Substance: INSULIN DETEMIR
  17. NOVOLOG [Concomitant]
     Active Substance: INSULIN ASPART
  18. ACETAMINOPHEN\HYDROCODONE [Concomitant]
     Active Substance: ACETAMINOPHEN\HYDROCODONE
  19. TIZANIDINE [Concomitant]
     Active Substance: TIZANIDINE
  20. ZOLPIDEM TARTRATE [Concomitant]
     Active Substance: ZOLPIDEM TARTRATE
  21. KLOR-CON [Concomitant]
     Active Substance: POTASSIUM CHLORIDE
  22. ADVAIR DISKUS [Concomitant]
     Active Substance: FLUTICASONE PROPIONATE\SALMETEROL XINAFOATE
  23. ALBUTEROL [Concomitant]
     Active Substance: ALBUTEROL
  24. OXYGEN [Concomitant]
     Active Substance: OXYGEN
  25. LEVAQUIN [Concomitant]
     Active Substance: LEVOFLOXACIN
     Indication: Infection
     Dates: start: 2015
  26. FLOVENT DISKUS [Concomitant]
     Active Substance: FLUTICASONE PROPIONATE
  27. GABAPENTIN [Concomitant]
     Active Substance: GABAPENTIN
  28. XARELTO [Concomitant]
     Active Substance: RIVAROXABAN
  29. LEXAPRO [Concomitant]
     Active Substance: ESCITALOPRAM OXALATE
  30. DEXTROSE [Concomitant]
     Active Substance: DEXTROSE\DEXTROSE MONOHYDRATE
  31. BYDUREON [Concomitant]
     Active Substance: EXENATIDE
  32. SINGULAIR [Concomitant]
     Active Substance: MONTELUKAST SODIUM
  33. TRESIBA [Concomitant]
     Active Substance: INSULIN DEGLUDEC
  34. SPIRIVA [Concomitant]
     Active Substance: TIOTROPIUM BROMIDE MONOHYDRATE
  35. ANUSOL NOS [Concomitant]
     Active Substance: BALSAM PERU\BENZYL BENZOATE\BISMUTH HYDROXIDE\BISMUTH SUBGALLATE\HYDROCORTISONE ACETATE\ZINC OXIDE
  36. ZITHROMAX [Concomitant]
     Active Substance: AZITHROMYCIN DIHYDRATE
  37. CEFTIN [Concomitant]
     Active Substance: CEFUROXIME AXETIL
  38. CIPROFLOXACIN [Concomitant]
     Active Substance: CIPROFLOXACIN
     Indication: Infection
     Dates: start: 2013
  39. METRONIDAZOLE [Concomitant]
     Active Substance: METRONIDAZOLE
  40. FLUCONAZOLE [Concomitant]
     Active Substance: FLUCONAZOLE
  41. IBUPROFEN [Concomitant]
     Active Substance: IBUPROFEN
  42. HYDROXYCHLOROQUINE [Concomitant]
     Active Substance: HYDROXYCHLOROQUINE

REACTIONS (6)
  - Cardio-respiratory arrest [Fatal]
  - End stage renal disease [Fatal]
  - Chronic obstructive pulmonary disease [Fatal]
  - Chronic kidney disease [Not Recovered/Not Resolved]
  - Renal failure [Unknown]
  - Rebound acid hypersecretion [Unknown]

NARRATIVE: CASE EVENT DATE: 20151007
